FAERS Safety Report 17911305 (Version 1)
Quarter: 2020Q2

REPORT INFORMATION
  Report Type: Other
  Country: HU (occurrence: HU)
  Receive Date: 20200618
  Receipt Date: 20200618
  Transmission Date: 20200714
  Serious: Yes (Other)
  Sender: FDA-Public Use
  Company Number: HU-INNOGENIX, LLC-2086062

PATIENT
  Age: 30 Year
  Sex: Female

DRUGS (1)
  1. PROPRANOLOL HYDROCHLORIDE. [Suspect]
     Active Substance: PROPRANOLOL HYDROCHLORIDE
     Indication: TACHYCARDIA
     Route: 065

REACTIONS (3)
  - Somnambulism [Recovering/Resolving]
  - Ankle fracture [Unknown]
  - Condition aggravated [Recovering/Resolving]
